FAERS Safety Report 26051042 (Version 1)
Quarter: 2025Q4

REPORT INFORMATION
  Report Type: Spontaneous
  Country: US (occurrence: US)
  Receive Date: 20251117
  Receipt Date: 20251117
  Transmission Date: 20260118
  Serious: No
  Sender: CHATTEM
  Company Number: US-OPELLA-2025OHG032723

PATIENT
  Age: 53 Year
  Sex: Female

DRUGS (1)
  1. XYZAL [Suspect]
     Active Substance: LEVOCETIRIZINE DIHYDROCHLORIDE
     Indication: Rhinitis allergic
     Dosage: DOSAGE FREQUENCY: ONCE
     Route: 048

REACTIONS (2)
  - Therapeutic response shortened [Unknown]
  - No adverse event [Unknown]
